FAERS Safety Report 23294900 (Version 2)
Quarter: 2024Q1

REPORT INFORMATION
  Report Type: Spontaneous
  Country: GR (occurrence: GR)
  Receive Date: 20231213
  Receipt Date: 20240219
  Transmission Date: 20240410
  Serious: Yes (Hospitalization, Other)
  Sender: FDA-Public Use
  Company Number: GR-CELGENE-GRC-20210100374

PATIENT
  Age: 61 Year
  Sex: Male

DRUGS (37)
  1. CARFILZOMIB [Suspect]
     Active Substance: CARFILZOMIB
     Dosage: UNK
     Route: 065
     Dates: start: 20210119
  2. CARFILZOMIB [Suspect]
     Active Substance: CARFILZOMIB
     Indication: Plasma cell myeloma
     Dosage: 113 MG
     Route: 041
     Dates: start: 20201229, end: 20201229
  3. DEXAMETHASONE [Suspect]
     Active Substance: DEXAMETHASONE
     Indication: Plasma cell myeloma
     Dosage: 40 MG
     Route: 065
     Dates: start: 20201229
  4. LENALIDOMIDE [Suspect]
     Active Substance: LENALIDOMIDE
     Indication: Plasma cell myeloma
     Dosage: 10 MG
     Route: 048
     Dates: start: 20201222, end: 20201229
  5. LENALIDOMIDE [Suspect]
     Active Substance: LENALIDOMIDE
     Dosage: 15 MG
     Route: 048
     Dates: start: 20210119
  6. AMLOPEN [Concomitant]
     Indication: Product used for unknown indication
     Dosage: UNK
     Route: 065
     Dates: start: 20210108, end: 20210112
  7. AMLOPEN [Concomitant]
     Dosage: UNK
     Route: 065
     Dates: start: 20210112
  8. ACETAMINOPHEN [Concomitant]
     Active Substance: ACETAMINOPHEN
     Indication: Prophylaxis
     Dosage: FREQUENCY TEXT: NOT PROVIDED
     Route: 065
     Dates: start: 20201215, end: 20201222
  9. COVID-19 vaccine [Concomitant]
     Indication: Prophylaxis
     Dosage: UNK
     Route: 065
     Dates: start: 20210305, end: 20210305
  10. COVID-19 vaccine [Concomitant]
     Dosage: UNK
     Route: 065
     Dates: start: 20210518, end: 20210518
  11. COVID-19 vaccine [Concomitant]
     Dosage: UNK
     Route: 065
     Dates: start: 20211115, end: 20211115
  12. Calcioral [Concomitant]
     Dosage: 500 MG, QD
     Route: 065
     Dates: start: 20201229, end: 20201231
  13. Calcioral [Concomitant]
     Dosage: 500 MG, QD
     Route: 065
     Dates: start: 20201231, end: 20210108
  14. Calcioral [Concomitant]
     Indication: Adverse event
     Dosage: UNK
     Route: 065
     Dates: start: 20201229, end: 20201231
  15. Calcioral [Concomitant]
     Indication: Hypocalcaemia
     Dosage: UNK
     Route: 065
     Dates: start: 20201231
  16. DIMETHINDENE [Concomitant]
     Active Substance: DIMETHINDENE
     Indication: Prophylaxis
     Dosage: UNK
     Route: 065
     Dates: start: 20201215
  17. ALBUMIN HUMAN [Concomitant]
     Active Substance: ALBUMIN HUMAN
     Indication: Hypoalbuminaemia
     Dosage: 20 MG
     Route: 042
     Dates: start: 20210106, end: 20210106
  18. ALBUMIN HUMAN [Concomitant]
     Active Substance: ALBUMIN HUMAN
     Dosage: UNK
     Route: 042
     Dates: start: 20231230
  19. INNOHEP [Concomitant]
     Active Substance: TINZAPARIN SODIUM
     Indication: Prophylaxis
     Dosage: UNK
     Route: 065
     Dates: start: 20201222, end: 20210107
  20. BEMIPARIN SODIUM [Concomitant]
     Active Substance: BEMIPARIN SODIUM
     Indication: Prophylaxis
     Dosage: UNK
     Route: 065
     Dates: start: 20210108
  21. NEBIVOLOL HYDROCHLORIDE [Concomitant]
     Active Substance: NEBIVOLOL HYDROCHLORIDE
     Indication: Atrial fibrillation
     Dosage: 1.25 MILLIGRAM
     Route: 065
     Dates: start: 20201231
  22. NEBIVOLOL HYDROCHLORIDE [Concomitant]
     Active Substance: NEBIVOLOL HYDROCHLORIDE
     Indication: Adverse event
     Dosage: UNK
     Route: 065
     Dates: start: 20201231
  23. OMEPRAZOLE [Concomitant]
     Active Substance: OMEPRAZOLE
     Indication: Prophylaxis
     Dosage: UNK
     Route: 065
     Dates: start: 20201222
  24. MAALOX ANTACID [Concomitant]
     Active Substance: ALUMINUM HYDROXIDE\DIMETHICONE\MAGNESIUM HYDROXIDE
     Indication: Adverse event
     Dosage: UNK
     Route: 065
     Dates: start: 20201225
  25. NEXIUM [Concomitant]
     Active Substance: ESOMEPRAZOLE MAGNESIUM
     Indication: Adverse event
     Dosage: UNK
     Route: 065
     Dates: start: 20201224
  26. SODIUM CHLORIDE [Concomitant]
     Active Substance: SODIUM CHLORIDE
     Indication: Renal impairment
     Dosage: 1000 ML, QD
     Route: 042
     Dates: start: 20210103, end: 20210108
  27. SODIUM CHLORIDE [Concomitant]
     Active Substance: SODIUM CHLORIDE
     Dosage: 1000 MILLILITERUNK
     Route: 065
     Dates: start: 20201230, end: 20210108
  28. SODIUM CHLORIDE [Concomitant]
     Active Substance: SODIUM CHLORIDE
     Indication: Nephrotic syndrome
     Dosage: 500 ML, QD
     Route: 042
     Dates: start: 20210103, end: 20210108
  29. SODIUM CHLORIDE [Concomitant]
     Active Substance: SODIUM CHLORIDE
     Dosage: 500 ML, QD
     Route: 042
     Dates: start: 20201230, end: 20210108
  30. SODIUM CHLORIDE [Concomitant]
     Active Substance: SODIUM CHLORIDE
     Indication: Adverse event
     Dosage: UNK
     Route: 042
     Dates: start: 20201230
  31. SODIUM CHLORIDE [Concomitant]
     Active Substance: SODIUM CHLORIDE
     Dosage: UNK
     Route: 042
     Dates: start: 20231230
  32. ALFACALCIDOL [Concomitant]
     Active Substance: ALFACALCIDOL
     Indication: Hypocalcaemia
     Dosage: 0.25 UG, QD
     Route: 065
     Dates: start: 20201231, end: 20210108
  33. ALFACALCIDOL [Concomitant]
     Active Substance: ALFACALCIDOL
     Dosage: UNK
     Route: 065
     Dates: start: 20231229
  34. ALFACALCIDOL [Concomitant]
     Active Substance: ALFACALCIDOL
     Indication: Adverse event
     Dosage: UNK (25 UG)
     Route: 065
     Dates: start: 20201231
  35. ASPIRIN [Concomitant]
     Active Substance: ASPIRIN
     Indication: Cerebrovascular accident
     Dosage: UNK
     Route: 065
     Dates: start: 20200601, end: 20201214
  36. ZOMETA [Concomitant]
     Active Substance: ZOLEDRONIC ACID
     Indication: Renal impairment
     Dosage: 3 MG
     Route: 065
     Dates: start: 20201222
  37. ZOMETA [Concomitant]
     Active Substance: ZOLEDRONIC ACID
     Indication: Plasma cell myeloma
     Dosage: UNK
     Route: 065
     Dates: start: 20201222

REACTIONS (1)
  - Nephrotic syndrome [Recovered/Resolved]

NARRATIVE: CASE EVENT DATE: 20210103
